FAERS Safety Report 7764535-6 (Version None)
Quarter: 2011Q3

REPORT INFORMATION
  Report Type: 
  Country: None (occurrence: None)
  Receive Date: 20110921
  Receipt Date: 20110914
  Transmission Date: 20111222
  Serious: Yes (Hospitalization)
  Sender: FDA-Public Use
  Company Number: CA-PFIZER INC-2011221790

PATIENT
  Age: 67 Year
  Sex: Male

DRUGS (2)
  1. LASIX [Concomitant]
     Dosage: UNK
     Route: 048
  2. PANTOPRAZOLE SODIUM [Suspect]
     Dosage: 40 MG, 1X/DAY
     Route: 048

REACTIONS (1)
  - HYPOMAGNESAEMIA [None]
